FAERS Safety Report 5409110-3 (Version None)
Quarter: 2007Q3

REPORT INFORMATION
  Report Type: 
  Country: None (occurrence: None)
  Receive Date: 20070806
  Receipt Date: 20070726
  Transmission Date: 20080115
  Serious: Yes (Hospitalization)
  Sender: FDA-Public Use
  Company Number: TPG2007A00511

PATIENT
  Age: 76 Year
  Sex: Male

DRUGS (5)
  1. COMPETACT (PIOGLITAZONE HYDROCHLORIDE, METFORMIN HYDROCHLORIDE) [Suspect]
     Indication: TYPE 2 DIABETES MELLITUS
     Dosage: PIOGLITAZONE 15 MG/METFORMIN 850 MG PER ORAL
     Route: 048
     Dates: start: 20070220
  2. GLYBURIDE [Concomitant]
  3. CARDIAC THERAPY (CARDIAC THERAPY) [Concomitant]
  4. DIURETICS (DIURETICS) [Concomitant]
  5. ANTIHYPERTENSIVES (ANTIHYPERTENSIVES) [Concomitant]

REACTIONS (1)
  - CEREBROVASCULAR ACCIDENT [None]
